FAERS Safety Report 8492023-0 (Version None)
Quarter: 2012Q2

REPORT INFORMATION
  Report Type: 
  Country: None (occurrence: None)
  Receive Date: 20120627
  Receipt Date: 20120618
  Transmission Date: 20120825
  Serious: Yes (Death)
  Sender: FDA-Public Use
  Company Number: 2012P1042347

PATIENT
  Age: 2 Year
  Sex: Male

DRUGS (1)
  1. FENTANYL [Suspect]
     Indication: ACCIDENTAL EXPOSURE
     Dosage: 1 PATCH;X1;PO
     Route: 048

REACTIONS (2)
  - TOXICITY TO VARIOUS AGENTS [None]
  - ACCIDENTAL EXPOSURE [None]
